FAERS Safety Report 8414202-0 (Version None)
Quarter: 2012Q2

REPORT INFORMATION
  Report Type: 
  Country: None (occurrence: None)
  Receive Date: 20120605
  Receipt Date: 20120529
  Transmission Date: 20120825
  Serious: Yes (Hospitalization, Other)
  Sender: FDA-Public Use
  Company Number: AU-B.I. PHARMACEUTICALS,INC./RIDGEFIELD-2012-AU-00893AU

PATIENT
  Sex: Female
  Weight: 86 kg

DRUGS (10)
  1. LANOXIN [Concomitant]
     Dosage: 125 MCG
     Route: 048
  2. PANAMAX [Concomitant]
     Route: 048
  3. VALPROATE SODIUM [Concomitant]
     Dosage: 200 MG
     Route: 048
  4. BUPRENORPHINE [Concomitant]
     Dosage: 2.8571 MG
     Route: 048
  5. PRADAXA [Suspect]
  6. SIMVASTATIN [Concomitant]
     Dosage: 40 MG
     Route: 048
  7. MOVIPREP [Concomitant]
     Dosage: 13.125G/350.7MG/46.6MG/178.5MG
     Route: 048
  8. PERINDOPRIL ERBUMINE [Concomitant]
     Dosage: 10 MG
     Route: 048
  9. ISOPTIN [Concomitant]
     Dosage: 180 MG
     Route: 048
  10. UREMIDE [Concomitant]
     Dosage: 40 MG
     Route: 048

REACTIONS (2)
  - OESOPHAGEAL CARCINOMA [None]
  - GASTROINTESTINAL HAEMORRHAGE [None]
